FAERS Safety Report 24719644 (Version 1)
Quarter: 2024Q4

REPORT INFORMATION
  Report Type: Spontaneous
  Country: US (occurrence: US)
  Receive Date: 20241211
  Receipt Date: 20241211
  Transmission Date: 20250115
  Serious: No
  Sender: SPECGX
  Company Number: US-SPECGX-T202401134

PATIENT
  Age: 65 Year
  Sex: Female

DRUGS (7)
  1. FENTANYL TRANSDERMAL SYSTEM [Suspect]
     Active Substance: FENTANYL
     Indication: Pain
     Dosage: 12 MCG/HR, EVERY 3 DAYS
     Route: 062
     Dates: start: 20240424
  2. FENTANYL TRANSDERMAL SYSTEM [Suspect]
     Active Substance: FENTANYL
     Dosage: 12 MCG/HR, EVERY 3 DAYS
     Route: 062
     Dates: end: 20240525
  3. RANEXA [Concomitant]
     Active Substance: RANOLAZINE
     Indication: Cardiac disorder
     Dosage: 1000 MILLIGRAM, BID
     Route: 065
  4. PLAVIX [Concomitant]
     Active Substance: CLOPIDOGREL BISULFATE
     Indication: Cardiac disorder
     Dosage: UNK
     Route: 065
  5. CRESTOR [Concomitant]
     Active Substance: ROSUVASTATIN CALCIUM
     Indication: Cardiac disorder
     Dosage: UNK
     Route: 065
  6. BACLOFEN [Concomitant]
     Active Substance: BACLOFEN
     Indication: Cardiac disorder
     Dosage: 10 MILLIGRAM
     Route: 065
  7. STRATTERA [Concomitant]
     Active Substance: ATOMOXETINE HYDROCHLORIDE
     Indication: Attention deficit hyperactivity disorder
     Dosage: 60 MILLIGRAM
     Route: 065

REACTIONS (8)
  - Pain [Recovered/Resolved]
  - Detoxification [Recovered/Resolved]
  - Tremor [Recovered/Resolved]
  - Hyperhidrosis [Recovered/Resolved]
  - Dermal absorption impaired [Unknown]
  - Product physical issue [Unknown]
  - Drug ineffective [Unknown]
  - Product adhesion issue [Unknown]

NARRATIVE: CASE EVENT DATE: 20240424
